FAERS Safety Report 12137065 (Version 1)
Quarter: 2016Q1

REPORT INFORMATION
  Report Type: Spontaneous
  Country: US (occurrence: US)
  Receive Date: 20160302
  Receipt Date: 20160302
  Transmission Date: 20160526
  Serious: No
  Sender: FDA-Public Use
  Company Number: US-PERRIGO-15US011549

PATIENT
  Age: 70 Year
  Sex: Female
  Weight: 88.44 kg

DRUGS (1)
  1. LOPERAMIDE HYDROCHLORIDE. [Suspect]
     Active Substance: LOPERAMIDE HYDROCHLORIDE
     Indication: DIARRHOEA
     Dosage: 4 MG AFTER 1ST LOOSE STOOL, THEN 2 MG AS NEEDED
     Route: 048
     Dates: start: 20151018

REACTIONS (2)
  - Incorrect drug administration duration [Unknown]
  - Drug effect incomplete [Unknown]

NARRATIVE: CASE EVENT DATE: 20151018
